FAERS Safety Report 5952194-4 (Version None)
Quarter: 2008Q4

REPORT INFORMATION
  Report Type: 
  Country: None (occurrence: None)
  Receive Date: 20081113
  Receipt Date: 20081105
  Transmission Date: 20090506
  Serious: Yes (Other)
  Sender: FDA-Public Use
  Company Number: CN-BAXTER-2008BH012049

PATIENT
  Age: 28 Year
  Sex: Female

DRUGS (4)
  1. SODIUM CHLORIDE 0.9% IN PLASTIC CONTAINER [Suspect]
     Indication: PYREXIA
     Route: 042
     Dates: start: 20081104, end: 20081104
  2. SULBACTAM [Concomitant]
     Indication: PYREXIA
     Route: 042
     Dates: start: 20081104, end: 20081104
  3. CEFOPERAZONE SODIUM [Concomitant]
     Indication: PYREXIA
     Route: 042
     Dates: start: 20081104, end: 20081104
  4. GLUCOSE INJECTION [Concomitant]
     Indication: PYREXIA
     Route: 042
     Dates: start: 20081104, end: 20081104

REACTIONS (2)
  - CHILLS [None]
  - PYREXIA [None]
